FAERS Safety Report 13337435 (Version 2)
Quarter: 2017Q1

REPORT INFORMATION
  Report Type: Report from Study
  Country: CN (occurrence: CN)
  Receive Date: 20170315
  Receipt Date: 20170328
  Transmission Date: 20170428
  Serious: Yes (Death)
  Sender: FDA-Public Use
  Company Number: CN-ROCHE-1906230

PATIENT
  Age: 79 Year
  Sex: Male
  Weight: 65 kg

DRUGS (1)
  1. ALTEPLASE [Suspect]
     Active Substance: ALTEPLASE
     Indication: ISCHAEMIC STROKE
     Dosage: DOSAGE: 50
     Route: 013
     Dates: start: 20080126

REACTIONS (6)
  - Cardiomyopathy acute [Fatal]
  - Cardiac failure [Fatal]
  - Pneumonia aspiration [Fatal]
  - Pyrexia [Fatal]
  - Acute kidney injury [Fatal]
  - Metabolic acidosis [Fatal]
